FAERS Safety Report 7218161-8 (Version None)
Quarter: 2010Q4

REPORT INFORMATION
  Report Type: 
  Country: None (occurrence: None)
  Receive Date: 20101230
  Receipt Date: 20101215
  Transmission Date: 20110411
  Serious: Yes (Life-Threatening)
  Sender: FDA-Public Use
  Company Number: AUR-APL-2010-02612

PATIENT
  Age: 44 Year
  Sex: Female

DRUGS (7)
  1. CITALOPRAM HYDROBROMIDE [Suspect]
     Indication: DEPRESSION
     Dosage: 20MG - ORAL
     Dates: start: 20100930
  2. OLANZAPINE [Suspect]
  3. VENLAFAXINE [Suspect]
     Indication: DEPRESSIVE SYMPTOM
     Dosage: 300 MG
  4. LITHIUM CARBONATE [Suspect]
     Indication: DEPRESSIVE SYMPTOM
     Dosage: 300 MG -DAILY
  5. LITHIUM CARBONATE [Suspect]
     Indication: DEPRESSIVE SYMPTOM
     Dosage: 600 MG - DAILY
  6. LITHIUM CARBONATE [Suspect]
     Indication: DEPRESSIVE SYMPTOM
     Dosage: 900 MG - DAILY
  7. QUETIAPINE [Suspect]
     Indication: DEPRESSIVE SYMPTOM
     Dosage: 125 MG - DAILY -

REACTIONS (7)
  - ASPIRATION [None]
  - INTENTIONAL OVERDOSE [None]
  - LOWER RESPIRATORY TRACT INFECTION [None]
  - RESPIRATORY RATE DECREASED [None]
  - SINUS TACHYCARDIA [None]
  - SUICIDE ATTEMPT [None]
  - WHITE BLOOD CELL COUNT INCREASED [None]
